FAERS Safety Report 14459209 (Version 1)
Quarter: 2018Q1

REPORT INFORMATION
  Report Type: Spontaneous
  Country: US (occurrence: US)
  Receive Date: 20180130
  Receipt Date: 20180130
  Transmission Date: 20180509
  Serious: Yes (Other)
  Sender: FDA-Public Use
  Company Number: US-JNJFOC-20180126724

PATIENT
  Sex: Female

DRUGS (9)
  1. REMICADE [Suspect]
     Active Substance: INFLIXIMAB
     Indication: OSTEOARTHRITIS
     Route: 042
  2. HUMIRA [Suspect]
     Active Substance: ADALIMUMAB
     Indication: CROHN^S DISEASE
     Dosage: 1 IN 1-2 (0.8 ML)
     Route: 058
     Dates: start: 20160715
  3. CELEBREX [Concomitant]
     Active Substance: CELECOXIB
     Route: 065
  4. REMICADE [Suspect]
     Active Substance: INFLIXIMAB
     Indication: CROHN^S DISEASE
     Route: 042
  5. PROPRANOLOL [Concomitant]
     Active Substance: PROPRANOLOL HYDROCHLORIDE
     Indication: HYPERTENSION
     Route: 065
  6. VITAMIN E [Concomitant]
     Active Substance: .ALPHA.-TOCOPHEROL
     Route: 065
  7. CALCIUM VITAMIN D [Concomitant]
     Active Substance: CALCIUM\VITAMIN D
     Dosage: 600 ^HQD^
     Route: 065
  8. ARAVA [Concomitant]
     Active Substance: LEFLUNOMIDE
     Route: 065
  9. IRON [Concomitant]
     Active Substance: IRON
     Route: 065

REACTIONS (9)
  - Bone cyst [Unknown]
  - Procedural pain [Not Recovered/Not Resolved]
  - Arthralgia [Unknown]
  - Exostosis [Recovered/Resolved]
  - Lupus-like syndrome [Recovered/Resolved]
  - Rash [Unknown]
  - Weight increased [Unknown]
  - Alopecia [Unknown]
  - Osteoarthritis [Recovered/Resolved]

NARRATIVE: CASE EVENT DATE: 2016
